FAERS Safety Report 7538228-4 (Version None)
Quarter: 2011Q2

REPORT INFORMATION
  Report Type: 
  Country: None (occurrence: None)
  Receive Date: 20110609
  Receipt Date: 20030930
  Transmission Date: 20111010
  Serious: Yes (Other)
  Sender: FDA-Public Use
  Company Number: PHHO2003CA12039

PATIENT
  Sex: Male

DRUGS (1)
  1. CLOZAPINE [Suspect]
     Indication: SCHIZOPHRENIA
     Dates: start: 20030529, end: 20030922

REACTIONS (4)
  - PNEUMONIA ASPIRATION [None]
  - LOSS OF CONSCIOUSNESS [None]
  - ACCIDENT [None]
  - FALL [None]
